FAERS Safety Report 11062743 (Version 1)
Quarter: 2015Q2

REPORT INFORMATION
  Report Type: Report from Study
  Country: BR (occurrence: BR)
  Receive Date: 20150424
  Receipt Date: 20150424
  Transmission Date: 20150821
  Serious: Yes (Other)
  Sender: FDA-Public Use
  Company Number: PHHY2015BR045167

PATIENT
  Sex: Female
  Weight: 72 kg

DRUGS (4)
  1. EXELON PATCH [Suspect]
     Active Substance: RIVASTIGMINE
     Dosage: 1 DF, QD (10 CM2)
     Route: 062
     Dates: start: 2014
  2. QUEROK [Suspect]
     Active Substance: QUETIAPINE FUMARATE
     Indication: AGITATION
     Dosage: 25 MG, QD
     Route: 065
  3. RIVOTRIL [Suspect]
     Active Substance: CLONAZEPAM
     Indication: PRODUCT USED FOR UNKNOWN INDICATION
     Dosage: UNK, QD (AT BED TIME)
     Route: 065
  4. EXELON PATCH [Suspect]
     Active Substance: RIVASTIGMINE
     Indication: DEMENTIA ALZHEIMER^S TYPE
     Dosage: 1 DF, UNK (5 CM2)
     Route: 062

REACTIONS (2)
  - Lung disorder [Not Recovered/Not Resolved]
  - Hallucination [Not Recovered/Not Resolved]
